FAERS Safety Report 9463863 (Version 2)
Quarter: 2013Q3

REPORT INFORMATION
  Report Type: Spontaneous
  Country: BR (occurrence: BR)
  Receive Date: 20130819
  Receipt Date: 20130828
  Transmission Date: 20140515
  Serious: Yes (Death)
  Sender: FDA-Public Use
  Company Number: BR-PFIZER INC-2013235671

PATIENT
  Age: 66 Year
  Sex: Female
  Weight: 60 kg

DRUGS (1)
  1. AROMASIN [Suspect]
     Indication: NAUSEA
     Dosage: UNK
     Route: 048
     Dates: start: 201305

REACTIONS (1)
  - Neoplasm malignant [Fatal]
